FAERS Safety Report 16275236 (Version 3)
Quarter: 2019Q2

REPORT INFORMATION
  Report Type: Report from Study
  Country: US (occurrence: US)
  Receive Date: 20190504
  Receipt Date: 20190607
  Transmission Date: 20190711
  Serious: Yes (Other)
  Sender: FDA-Public Use
  Company Number: PHEH2019US018238

PATIENT
  Age: 64 Year
  Sex: Male
  Weight: 82.55 kg

DRUGS (1)
  1. ENTRESTO [Suspect]
     Active Substance: SACUBITRIL\VALSARTAN
     Indication: PRODUCT USED FOR UNKNOWN INDICATION
     Dosage: 50 MG (24/26 MG SACUBITRIL/VALSARTAN), BID
     Route: 048
     Dates: start: 20170429

REACTIONS (4)
  - Blindness [Unknown]
  - Prescribed underdose [Unknown]
  - Ejection fraction decreased [Unknown]
  - Wrong technique in product usage process [Unknown]

NARRATIVE: CASE EVENT DATE: 20180403
